FAERS Safety Report 6310290-6 (Version None)
Quarter: 2009Q3

REPORT INFORMATION
  Report Type: 
  Country: None (occurrence: None)
  Receive Date: 20090814
  Receipt Date: 20090805
  Transmission Date: 20100115
  Serious: Yes (Other)
  Sender: FDA-Public Use
  Company Number: PHHY2009BR32529

PATIENT
  Age: 42 Year
  Sex: Female
  Weight: 88 kg

DRUGS (2)
  1. TEGRETOL [Suspect]
     Indication: BIPOLAR DISORDER
     Dosage: 1 TABLET, BID
     Route: 048
     Dates: start: 20030101
  2. CARBAMAZEPINE [Concomitant]
     Dosage: UNK

REACTIONS (4)
  - APATHY [None]
  - DEPRESSION [None]
  - EUPHORIC MOOD [None]
  - WEIGHT INCREASED [None]
